FAERS Safety Report 12093436 (Version 1)
Quarter: 2016Q1

REPORT INFORMATION
  Report Type: Spontaneous
  Country: US (occurrence: US)
  Receive Date: 20160219
  Receipt Date: 20160219
  Transmission Date: 20160526
  Serious: Yes (Other)
  Sender: FDA-Public Use
  Company Number: US-ACTAVIS-2016-03355

PATIENT
  Age: 85 Year
  Sex: Male

DRUGS (3)
  1. POVIDONE-IODINE (UNKNOWN) [Suspect]
     Active Substance: POVIDONE-IODINE
     Indication: CYSTOSCOPY
     Dosage: UNK
     Route: 061
  2. CHLORHEXIDINE (UNKNOWN) [Suspect]
     Active Substance: CHLORHEXIDINE
     Indication: CYSTOSCOPY
     Dosage: UNK
     Route: 065
  3. LIDOCAINE (WATSON LABORATORIES) [Suspect]
     Active Substance: LIDOCAINE
     Indication: CYSTOSCOPY
     Dosage: UNK
     Route: 061

REACTIONS (1)
  - Anaphylactic reaction [Recovered/Resolved]
